FAERS Safety Report 10914796 (Version 1)
Quarter: 2015Q1

REPORT INFORMATION
  Report Type: Spontaneous
  Country: IN (occurrence: IN)
  Receive Date: 20150313
  Receipt Date: 20150313
  Transmission Date: 20150721
  Serious: Yes (Other)
  Sender: FDA-Public Use
  Company Number: IN-ALLERGAN-1504073US

PATIENT
  Age: 30 Year
  Sex: Female

DRUGS (1)
  1. BOTOX [Suspect]
     Active Substance: ONABOTULINUMTOXINA
     Indication: STRABISMUS
     Dosage: 4 UNITS, SINGLE
     Route: 030

REACTIONS (10)
  - Eye operation complication [Unknown]
  - Retinal tear [Unknown]
  - Vitreous haemorrhage [Recovered/Resolved]
  - Intraocular pressure increased [Unknown]
  - Retinal vascular disorder [Unknown]
  - Visual acuity reduced [Recovered/Resolved]
  - Eye penetration [Recovered/Resolved]
  - Eye pain [Unknown]
  - Drug administered at inappropriate site [Unknown]
  - Retinal haemorrhage [Recovered/Resolved]
